FAERS Safety Report 6287269-6 (Version None)
Quarter: 2009Q3

REPORT INFORMATION
  Report Type: 
  Country: None (occurrence: None)
  Receive Date: 20090728
  Receipt Date: 20090716
  Transmission Date: 20100115
  Serious: Yes (Other)
  Sender: FDA-Public Use
  Company Number: PHEH2009US07641

PATIENT
  Age: 66 Year
  Sex: Female

DRUGS (2)
  1. ZOMETA [Suspect]
     Indication: MULTIPLE MYELOMA
     Dosage: 4 MG
     Route: 042
     Dates: start: 20080407
  2. REVLIMID [Concomitant]
     Dosage: 15 MG, UNK

REACTIONS (2)
  - BONE DISORDER [None]
  - MULTIPLE MYELOMA [None]
